FAERS Safety Report 17186620 (Version 1)
Quarter: 2019Q4

REPORT INFORMATION
  Report Type: Spontaneous
  Country: US (occurrence: US)
  Receive Date: 20191220
  Receipt Date: 20191220
  Transmission Date: 20200122
  Serious: Yes (Other)
  Sender: FDA-Public Use
  Company Number: US-REGENERON PHARMACEUTICALS, INC.-2019-73090

PATIENT

DRUGS (1)
  1. EYLEA [Suspect]
     Active Substance: AFLIBERCEPT
     Indication: NEOVASCULAR AGE-RELATED MACULAR DEGENERATION
     Dosage: STANDARD ADULT DOSAGE, BILATERAL INJECTIONS
     Dates: start: 201605

REACTIONS (3)
  - Internal haemorrhage [Unknown]
  - Colon cancer stage I [Unknown]
  - Anaemia [Unknown]

NARRATIVE: CASE EVENT DATE: 201908
